FAERS Safety Report 6645873-7 (Version None)
Quarter: 2010Q1

REPORT INFORMATION
  Report Type: 
  Country: None (occurrence: None)
  Receive Date: 20100323
  Receipt Date: 20100310
  Transmission Date: 20100710
  Serious: Yes (Hospitalization, Other)
  Sender: FDA-Public Use
  Company Number: PHHY2010AU05977

PATIENT
  Sex: Male

DRUGS (16)
  1. ACLASTA [Suspect]
     Dosage: 5 MG/100ML
     Route: 042
     Dates: start: 20100127
  2. ARANESP [Concomitant]
     Dosage: 40MCG/0.4ML ONCE WEEKLY
     Route: 058
  3. BETNOVATE [Concomitant]
     Dosage: 1-2XTWICE A DAY
     Route: 048
  4. CRESTOR [Concomitant]
     Dosage: 5 MG AT NIGHT
     Route: 048
  5. DIAMICRON [Concomitant]
     Dosage: 30 MG, 4 IN THE MORNING
     Route: 048
  6. MICARDIS [Concomitant]
     Dosage: 1 IN THE MORNING
     Route: 048
  7. ACETAMINOPHEN AND CODEINE PHOSPHATE [Concomitant]
     Dosage: 500MG/30MG, 1-2 TABLETS EVERY 4 HOURS
     Route: 048
  8. PANAFCORT [Concomitant]
     Dosage: 25 MG, 03 TABLETS PER DAY
     Route: 048
     Dates: start: 20100218
  9. PROGOUT [Concomitant]
     Dosage: 1 1/2 TABLET IN THE MORNING
     Route: 048
  10. ROCALTROL [Concomitant]
     Dosage: .25 1 DAILY ON MONDAY, WEDNESDAY ND FRIDAY
     Route: 048
  11. TENORMIN [Concomitant]
     Dosage: 50 MG DAILY
     Route: 048
  12. ASPIRIN [Concomitant]
     Dosage: 100 MG, 1 DAILY
     Route: 048
  13. COLCHICINE [Concomitant]
     Dosage: 25 MG, 1 DAILY
  14. QUININE [Concomitant]
     Dosage: 300 MG DAILY
     Route: 048
  15. CELEBREX [Concomitant]
     Dosage: 200 MG 1 DAILY
     Route: 048
  16. NAVOBAN [Concomitant]
     Dosage: 20 MG, ONE PER WEEK

REACTIONS (9)
  - ASTHENIA [None]
  - BLOOD CALCIUM DECREASED [None]
  - BLOOD SODIUM DECREASED [None]
  - C-REACTIVE PROTEIN INCREASED [None]
  - INFLAMMATION [None]
  - NEUTROPHIL COUNT INCREASED [None]
  - PAIN IN EXTREMITY [None]
  - PYREXIA [None]
  - RED BLOOD CELL SEDIMENTATION RATE INCREASED [None]
